FAERS Safety Report 10128343 (Version 1)
Quarter: 2014Q2

REPORT INFORMATION
  Report Type: Spontaneous
  Country: US (occurrence: US)
  Receive Date: 20140428
  Receipt Date: 20140428
  Transmission Date: 20141212
  Serious: No
  Sender: FDA-Public Use
  Company Number: US-BIOGENIDEC-2014BI036704

PATIENT
  Age: 59 Year
  Sex: Female

DRUGS (10)
  1. TECFIDERA [Suspect]
     Indication: MULTIPLE SCLEROSIS
     Route: 048
     Dates: start: 20140113
  2. LISINOPRIL [Concomitant]
  3. LORAZEPAM [Concomitant]
  4. PLAVIX [Concomitant]
  5. SIMVASTATIN [Concomitant]
  6. SYNTHROID [Concomitant]
  7. CALCIUM CARBONATE [Concomitant]
  8. CRANBERRY [Concomitant]
  9. MAGNESIUM ASPARTATE [Concomitant]
  10. VITAMIN C [Concomitant]

REACTIONS (1)
  - Blood glucose increased [Unknown]
